FAERS Safety Report 6506311-8 (Version None)
Quarter: 2009Q4

REPORT INFORMATION
  Report Type: 
  Country: None (occurrence: None)
  Receive Date: 20091218
  Receipt Date: 20091210
  Transmission Date: 20100525
  Serious: Yes (Other)
  Sender: FDA-Public Use
  Company Number: DE-ELI_LILLY_AND_COMPANY-DE200912002870

PATIENT
  Age: 50 Year
  Sex: Male

DRUGS (3)
  1. GEMZAR [Suspect]
     Indication: NEOPLASM MALIGNANT
     Dosage: UNK, UNKNOWN
     Route: 042
     Dates: end: 20090809
  2. L-THYROXIN [Concomitant]
     Dosage: UNK, UNKNOWN
  3. CREON [Concomitant]
     Dosage: UNK, UNKNOWN

REACTIONS (4)
  - BONE PAIN [None]
  - CONJUNCTIVITIS [None]
  - PAIN IN EXTREMITY [None]
  - SICCA SYNDROME [None]
